FAERS Safety Report 6714196-X (Version None)
Quarter: 2010Q2

REPORT INFORMATION
  Report Type: 
  Country: None (occurrence: None)
  Receive Date: 20100503
  Receipt Date: 20100419
  Transmission Date: 20101027
  Serious: Yes (Hospitalization)
  Sender: FDA-Public Use
  Company Number: 010995

PATIENT
  Sex: Female

DRUGS (7)
  1. CERTOLIZUMAB PEGOL         (CERTOLIZUMAB PEGOL) [Suspect]
     Indication: RHEUMATOID ARTHRITIS
     Dosage: 200 MG 1X/2 WEEKS SUBCUTANEOUS
     Route: 058
     Dates: start: 20090820
  2. PREDNISOLONE [Concomitant]
  3. DICLOFENAC SODIUM [Concomitant]
  4. ROXATIDINE ACETATE HCL [Concomitant]
  5. TRIAZOLAM [Concomitant]
  6. ISONIAZID [Concomitant]
  7. PYRIDOXAL PHOSPHATE [Concomitant]

REACTIONS (1)
  - SUBARACHNOID HAEMORRHAGE [None]
